FAERS Safety Report 6375795-0 (Version None)
Quarter: 2009Q3

REPORT INFORMATION
  Report Type: 
  Country: None (occurrence: None)
  Receive Date: 20090924
  Receipt Date: 20090915
  Transmission Date: 20100115
  Serious: Yes (Life-Threatening, Disabling)
  Sender: FDA-Public Use
  Company Number: YE-ABBOTT-09P-298-0565002-00

PATIENT
  Age: 10 Year
  Sex: Male

DRUGS (3)
  1. DEPAKENE [Suspect]
     Indication: EPILEPSY
     Route: 048
  2. TOPIRAMATE [Concomitant]
     Indication: EPILEPSY
  3. CARBAMAZEPINE [Concomitant]
     Indication: EPILEPSY

REACTIONS (3)
  - DRUG INEFFECTIVE [None]
  - EPILEPSY [None]
  - MEDICATION RESIDUE [None]
